FAERS Safety Report 5205845-6 (Version None)
Quarter: 2007Q1

REPORT INFORMATION
  Report Type: 
  Country: None (occurrence: None)
  Receive Date: 20070108
  Receipt Date: 20070108
  Transmission Date: 20070707
  Serious: No
  Sender: FDA-Public Use
  Company Number: None

PATIENT
  Sex: Male
  Weight: 95.2554 kg

DRUGS (1)
  1. ZICAM [Suspect]
     Indication: NASOPHARYNGITIS
     Dosage: ONE SWAB  EVERY 4 HOURS  ENDOSINUSIA
     Route: 055

REACTIONS (3)
  - AGEUSIA [None]
  - ANOSMIA [None]
  - SINUSITIS [None]
